FAERS Safety Report 7050110-8 (Version None)
Quarter: 2010Q4

REPORT INFORMATION
  Report Type: 
  Country: None (occurrence: None)
  Receive Date: 20101018
  Receipt Date: 20101014
  Transmission Date: 20110411
  Serious: Yes (Other)
  Sender: FDA-Public Use
  Company Number: TR-BRISTOL-MYERS SQUIBB COMPANY-14348775

PATIENT
  Age: 55 Year
  Sex: Male
  Weight: 70 kg

DRUGS (3)
  1. BARACLUDE [Suspect]
     Indication: HEPATITIS B
     Route: 048
     Dates: start: 20080101
  2. PERINDOPRIL [Concomitant]
     Dosage: 1 DF:10 MG + 1.25 MG
     Route: 048
  3. INDAPAMID [Concomitant]

REACTIONS (1)
  - GYNAECOMASTIA [None]
